FAERS Safety Report 16267094 (Version 2)
Quarter: 2019Q2

REPORT INFORMATION
  Report Type: Report from Study
  Country: US (occurrence: US)
  Receive Date: 20190502
  Receipt Date: 20190516
  Transmission Date: 20190711
  Serious: Yes (Hospitalization, Other)
  Sender: FDA-Public Use
  Company Number: US-GILEAD-2019-0405510

PATIENT
  Age: 48 Year
  Sex: Female
  Weight: 64.86 kg

DRUGS (16)
  1. AMBRISENTAN [Suspect]
     Active Substance: AMBRISENTAN
     Indication: PULMONARY ARTERIAL HYPERTENSION
     Dosage: 10 MG, QD
     Route: 048
     Dates: start: 2014
  2. ALDACTONE [Concomitant]
     Active Substance: SPIRONOLACTONE
  3. LASIX [Concomitant]
     Active Substance: FUROSEMIDE
  4. PROTONIX [OMEPRAZOLE] [Concomitant]
     Active Substance: OMEPRAZOLE
  5. K-TAB [Concomitant]
     Active Substance: POTASSIUM CHLORIDE
  6. PROZAC [Concomitant]
     Active Substance: FLUOXETINE HYDROCHLORIDE
  7. FERROUS SULFATE. [Concomitant]
     Active Substance: FERROUS SULFATE
  8. ZOCOR [Concomitant]
     Active Substance: SIMVASTATIN
  9. REMODULIN [Concomitant]
     Active Substance: TREPROSTINIL
  10. MULTIVITAMIN [VITAMINS NOS] [Concomitant]
  11. MELATONIN [Concomitant]
     Active Substance: MELATONIN
  12. AVIDOXY [Concomitant]
  13. LOVENOX [LEVOFLOXACIN] [Concomitant]
  14. DELTASONE [DEXAMETHASONE] [Concomitant]
  15. ULTRAM [Concomitant]
     Active Substance: TRAMADOL HYDROCHLORIDE
  16. NORCO [Concomitant]
     Active Substance: ACETAMINOPHEN\HYDROCODONE BITARTRATE

REACTIONS (2)
  - Hypoxia [Recovered/Resolved]
  - Cardiac failure congestive [Unknown]

NARRATIVE: CASE EVENT DATE: 20190510
